FAERS Safety Report 7944271 (Version 3)
Quarter: 2012Q4

REPORT INFORMATION
  Report Type: 
  Country: US (occurrence: US)
  Receive Date: 20110513
  Receipt Date: 20120831
  Transmission Date: 20130627
  Serious: Yes (Hospitalization)
  Sender: FDA-Public Use
  Company Number: US-US-EMD SERONO, INC.-7057995

PATIENT
  Age: 52 None
  Sex: Female
  Weight: 93 kg

DRUGS (3)
  1. REBIF [Suspect]
     Indication: MULTIPLE SCLEROSIS
     Route: 058
     Dates: start: 201005
  2. SOLUMEDROL [Concomitant]
  3. AMPYRA [Concomitant]

REACTIONS (12)
  - Colitis [Recovered/Resolved]
  - Staphylococcal infection [Recovered/Resolved with Sequelae]
  - Cystitis [Recovered/Resolved]
  - Contusion [Recovered/Resolved]
  - Hypokinesia [Recovered/Resolved]
  - Road traffic accident [Recovered/Resolved]
  - Hypotension [Recovered/Resolved]
  - Hyperhidrosis [Recovered/Resolved]
  - Hypoaesthesia [Not Recovered/Not Resolved]
  - Fatigue [Unknown]
  - Injection site pain [Unknown]
  - Injection site bruising [Unknown]
